FAERS Safety Report 12811384 (Version 2)
Quarter: 2016Q4

REPORT INFORMATION
  Report Type: Spontaneous
  Country: US (occurrence: US)
  Receive Date: 20161005
  Receipt Date: 20161102
  Transmission Date: 20170207
  Serious: Yes (Death, Hospitalization)
  Sender: FDA-Public Use
  Company Number: US-UNITED THERAPEUTICS-UNT-2016-015457

PATIENT
  Age: 46 Year
  Sex: Female
  Weight: 45.35 kg

DRUGS (2)
  1. OPSUMIT [Concomitant]
     Active Substance: MACITENTAN
     Indication: PRODUCT USED FOR UNKNOWN INDICATION
  2. REMODULIN [Suspect]
     Active Substance: TREPROSTINIL
     Indication: PULMONARY HYPERTENSION
     Dosage: 0.0968 ?G/KG, CONTINUING
     Route: 041
     Dates: start: 20141009

REACTIONS (3)
  - Right ventricular failure [Fatal]
  - Hypotension [Fatal]
  - Renal failure [Fatal]

NARRATIVE: CASE EVENT DATE: 20160928
